FAERS Safety Report 5805997-0 (Version None)
Quarter: 2008Q3

REPORT INFORMATION
  Report Type: 
  Country: None (occurrence: None)
  Receive Date: 20080710
  Receipt Date: 20080707
  Transmission Date: 20090109
  Serious: Yes (Hospitalization)
  Sender: FDA-Public Use
  Company Number: B0527651A

PATIENT
  Age: 37 Year
  Sex: Female

DRUGS (4)
  1. AMOXICILLIN [Suspect]
     Route: 065
  2. IBUPROFEN [Suspect]
     Route: 065
  3. COLD MEDICATION [Suspect]
     Route: 065
  4. ACYCLOVIR [Concomitant]
     Route: 065

REACTIONS (8)
  - BLOOD BLISTER [None]
  - CONJUNCTIVAL HYPERAEMIA [None]
  - HEADACHE [None]
  - ORAL MUCOSA EROSION [None]
  - OROPHARYNGEAL BLISTERING [None]
  - PYREXIA [None]
  - RASH [None]
  - TOXIC EPIDERMAL NECROLYSIS [None]
